FAERS Safety Report 8207415-4 (Version None)
Quarter: 2012Q1

REPORT INFORMATION
  Report Type: 
  Country: None (occurrence: None)
  Receive Date: 20120312
  Receipt Date: 20120301
  Transmission Date: 20120608
  Serious: Yes (Hospitalization, Other)
  Sender: FDA-Public Use
  Company Number: DSJ-2011-27326

PATIENT
  Age: 61 Year
  Sex: Male

DRUGS (2)
  1. BENICAR HCT [Suspect]
     Indication: HYPERTENSION
     Dosage: 20/12.5 MG (1 IN 1 D), PER ORAL
     Route: 048
     Dates: start: 20100202, end: 20110101
  2. METFORMIN HCL [Concomitant]

REACTIONS (3)
  - INTERVERTEBRAL DISC OPERATION [None]
  - PROSTATE CANCER [None]
  - KIDNEY INFECTION [None]
